FAERS Safety Report 20473405 (Version 1)
Quarter: 2022Q1

REPORT INFORMATION
  Report Type: Spontaneous
  Country: GB (occurrence: GB)
  Receive Date: 20220215
  Receipt Date: 20220215
  Transmission Date: 20220423
  Serious: Yes (Other)
  Sender: FDA-Public Use
  Company Number: GB-MHRA-EYC 00272702

PATIENT
  Age: 46 Year
  Sex: Female
  Weight: 63.8 kg

DRUGS (1)
  1. MIRTAZAPINE [Suspect]
     Active Substance: MIRTAZAPINE
     Indication: Depressed mood
     Dosage: UNK (15MG AT NIGHT)
     Route: 048
     Dates: start: 20211202, end: 20220202

REACTIONS (1)
  - Eyelid myoclonus [Not Recovered/Not Resolved]

NARRATIVE: CASE EVENT DATE: 20211228
